FAERS Safety Report 11026083 (Version 1)
Quarter: 2015Q2

REPORT INFORMATION
  Report Type: Spontaneous
  Country: US (occurrence: None)
  Receive Date: 20150413
  Receipt Date: 20150413
  Transmission Date: 20150821
  Serious: Yes (Life-Threatening, Hospitalization, Disabling)
  Sender: FDA-Public Use
  Company Number: None

PATIENT
  Age: 78 Year
  Sex: Male
  Weight: 79.38 kg

DRUGS (8)
  1. IRBESARTAN. [Concomitant]
     Active Substance: IRBESARTAN
  2. CHLORTHAL [Concomitant]
  3. PANTOPRAZOLE [Concomitant]
     Active Substance: PANTOPRAZOLE SODIUM
  4. ZETIA [Concomitant]
     Active Substance: EZETIMIBE
  5. SULINDAC. [Suspect]
     Active Substance: SULINDAC
     Indication: OSTEOARTHRITIS
     Dosage: 150 MG, 2 PILLS, TWICE DAILY BREAKFAST/SUPPER, BY MOUTH
     Route: 048
     Dates: start: 20120503, end: 20141021
  6. FISH OIL [Concomitant]
     Active Substance: FISH OIL
  7. CENTRUM SILVER MENS MULTIVITIMIN [Concomitant]
  8. GABAPENTIN. [Concomitant]
     Active Substance: GABAPENTIN

REACTIONS (6)
  - Hypotension [None]
  - Full blood count decreased [None]
  - Duodenal ulcer haemorrhage [None]
  - Syncope [None]
  - Frequent bowel movements [None]
  - Heart rate irregular [None]

NARRATIVE: CASE EVENT DATE: 20141021
